FAERS Safety Report 5961224-5 (Version None)
Quarter: 2008Q4

REPORT INFORMATION
  Report Type: 
  Country: None (occurrence: None)
  Receive Date: 20081119
  Receipt Date: 20081105
  Transmission Date: 20090506
  Serious: Yes (Life-Threatening, Hospitalization, Other)
  Sender: FDA-Public Use
  Company Number: 1000001310

PATIENT
  Age: 87 Year
  Sex: Female
  Weight: 56 kg

DRUGS (6)
  1. ESCITALOPRAM OXALATE [Suspect]
     Indication: DEPRESSION
     Dosage: 10 MG (10 MG,  1 N 1 D), ORAL
     Route: 048
     Dates: start: 20070101, end: 20070101
  2. ESCITALOPRAM OXALATE [Suspect]
     Indication: DEPRESSION
     Dosage: 10 MG (10 MG, 1  IN 1 D), ORAL
     Route: 048
     Dates: start: 20080824, end: 20080906
  3. NITRIDERM(5 MILLIGRAM) [Concomitant]
  4. ATENOLOL (200 MILLIGRAM) [Concomitant]
  5. CORVASAL (2 MILLIGRAM) [Concomitant]
  6. PREVISCAN [Concomitant]

REACTIONS (3)
  - HYPONATRAEMIA [None]
  - LOSS OF CONSCIOUSNESS [None]
  - MALAISE [None]
